FAERS Safety Report 6806031-6 (Version None)
Quarter: 2010Q2

REPORT INFORMATION
  Report Type: 
  Country: None (occurrence: None)
  Receive Date: 20100629
  Receipt Date: 20100622
  Transmission Date: 20101027
  Serious: Yes (Other)
  Sender: FDA-Public Use
  Company Number: US-AMGEN-KDL404422

PATIENT
  Sex: Male
  Weight: 107.6 kg

DRUGS (5)
  1. PROCRIT [Suspect]
     Indication: MYELODYSPLASTIC SYNDROME
     Route: 058
     Dates: start: 20100309
  2. DACOGEN [Concomitant]
     Route: 042
     Dates: start: 20100420
  3. COUMADIN [Concomitant]
  4. LOPRESSOR [Concomitant]
  5. UNSPECIFIED ANTIDIABETIC AGENT [Concomitant]
     Route: 048

REACTIONS (4)
  - ANAEMIA [None]
  - BLOOD COUNT ABNORMAL [None]
  - NEUTROPENIA [None]
  - WHITE BLOOD CELL COUNT DECREASED [None]
